FAERS Safety Report 4522293-2 (Version None)
Quarter: 2004Q4

REPORT INFORMATION
  Report Type: 
  Country: None (occurrence: None)
  Receive Date: 20041207
  Receipt Date: 20041116
  Transmission Date: 20050328
  Serious: Yes (Hospitalization)
  Sender: FDA-Public Use
  Company Number: 210513

PATIENT
  Age: 59 Year
  Sex: Female

DRUGS (6)
  1. RITUXIMAB [Suspect]
     Indication: RHEUMATOID ARTHRITIS
     Dosage: 1000 MG, DAYS 1+15, INTRAVENOUS
     Route: 042
     Dates: start: 20040614, end: 20040628
  2. METHYLPREDNISOLONE [Suspect]
     Indication: RHEUMATOID ARTHRITIS
     Dosage: 100 MG, DAYS 1+15, INTRAVENOUS
     Route: 042
     Dates: start: 20040616, end: 20040628
  3. PREDNISONE [Suspect]
     Indication: RHEUMATOID ARTHRITIS
     Dosage: SEE IMAGE
     Route: 048
     Dates: start: 20040615, end: 20040627
  4. PREDNISONE [Suspect]
     Indication: RHEUMATOID ARTHRITIS
     Dosage: SEE IMAGE
     Route: 048
     Dates: start: 20040615, end: 20040627
  5. METHOTREXATE [Suspect]
     Dosage: 12.5 MG
     Dates: start: 20040620, end: 20041023
  6. PLACEBO [Suspect]

REACTIONS (5)
  - ANTINUCLEAR ANTIBODY POSITIVE [None]
  - HAEMOGLOBIN DECREASED [None]
  - HEPATITIS B [None]
  - SMOOTH MUSCLE ANTIBODY POSITIVE [None]
  - TOOTH DISORDER [None]
